FAERS Safety Report 25671711 (Version 1)
Quarter: 2025Q3

REPORT INFORMATION
  Report Type: Spontaneous
  Country: EU (occurrence: EU)
  Receive Date: 20250812
  Receipt Date: 20250812
  Transmission Date: 20251020
  Serious: Yes (Death)
  Sender: MYLAN
  Company Number: EU-ROCHE-10000328648

PATIENT
  Age: 58 Year
  Sex: Male

DRUGS (36)
  1. PREDNISONE [Suspect]
     Active Substance: PREDNISONE
     Indication: Diffuse large B-cell lymphoma
  2. PREDNISONE [Suspect]
     Active Substance: PREDNISONE
     Route: 065
  3. PREDNISONE [Suspect]
     Active Substance: PREDNISONE
     Route: 065
  4. PREDNISONE [Suspect]
     Active Substance: PREDNISONE
  5. CARBOPLATIN [Suspect]
     Active Substance: CARBOPLATIN
     Indication: Diffuse large B-cell lymphoma
  6. CARBOPLATIN [Suspect]
     Active Substance: CARBOPLATIN
     Route: 065
  7. CARBOPLATIN [Suspect]
     Active Substance: CARBOPLATIN
     Route: 065
  8. CARBOPLATIN [Suspect]
     Active Substance: CARBOPLATIN
  9. ETOPOSIDE [Suspect]
     Active Substance: ETOPOSIDE
     Indication: Diffuse large B-cell lymphoma
  10. ETOPOSIDE [Suspect]
     Active Substance: ETOPOSIDE
     Route: 065
  11. ETOPOSIDE [Suspect]
     Active Substance: ETOPOSIDE
     Route: 065
  12. ETOPOSIDE [Suspect]
     Active Substance: ETOPOSIDE
  13. RITUXIMAB [Suspect]
     Active Substance: RITUXIMAB
     Indication: Diffuse large B-cell lymphoma
  14. RITUXIMAB [Suspect]
     Active Substance: RITUXIMAB
     Route: 065
  15. RITUXIMAB [Suspect]
     Active Substance: RITUXIMAB
     Route: 065
  16. RITUXIMAB [Suspect]
     Active Substance: RITUXIMAB
  17. CYCLOPHOSPHAMIDE [Suspect]
     Active Substance: CYCLOPHOSPHAMIDE
     Indication: Diffuse large B-cell lymphoma
  18. CYCLOPHOSPHAMIDE [Suspect]
     Active Substance: CYCLOPHOSPHAMIDE
     Route: 065
  19. CYCLOPHOSPHAMIDE [Suspect]
     Active Substance: CYCLOPHOSPHAMIDE
     Route: 065
  20. CYCLOPHOSPHAMIDE [Suspect]
     Active Substance: CYCLOPHOSPHAMIDE
  21. DOXORUBICIN [Suspect]
     Active Substance: DOXORUBICIN
     Indication: Diffuse large B-cell lymphoma
  22. DOXORUBICIN [Suspect]
     Active Substance: DOXORUBICIN
     Route: 065
  23. DOXORUBICIN [Suspect]
     Active Substance: DOXORUBICIN
     Route: 065
  24. DOXORUBICIN [Suspect]
     Active Substance: DOXORUBICIN
  25. VINCRISTINE [Suspect]
     Active Substance: VINCRISTINE
     Indication: Diffuse large B-cell lymphoma
  26. VINCRISTINE [Suspect]
     Active Substance: VINCRISTINE
     Route: 065
  27. VINCRISTINE [Suspect]
     Active Substance: VINCRISTINE
     Route: 065
  28. VINCRISTINE [Suspect]
     Active Substance: VINCRISTINE
  29. IFOSFAMIDE [Suspect]
     Active Substance: IFOSFAMIDE
     Indication: Diffuse large B-cell lymphoma
  30. IFOSFAMIDE [Suspect]
     Active Substance: IFOSFAMIDE
     Route: 065
  31. IFOSFAMIDE [Suspect]
     Active Substance: IFOSFAMIDE
     Route: 065
  32. IFOSFAMIDE [Suspect]
     Active Substance: IFOSFAMIDE
  33. VENETOCLAX [Suspect]
     Active Substance: VENETOCLAX
     Indication: Diffuse large B-cell lymphoma
  34. VENETOCLAX [Suspect]
     Active Substance: VENETOCLAX
     Route: 065
  35. VENETOCLAX [Suspect]
     Active Substance: VENETOCLAX
     Route: 065
  36. VENETOCLAX [Suspect]
     Active Substance: VENETOCLAX

REACTIONS (2)
  - Cytokine release syndrome [Fatal]
  - Off label use [Unknown]
